FAERS Safety Report 19910481 (Version 1)
Quarter: 2021Q4

REPORT INFORMATION
  Report Type: Report from Study
  Country: US (occurrence: US)
  Receive Date: 20211004
  Receipt Date: 20211004
  Transmission Date: 20220303
  Serious: Yes (Other)
  Sender: FDA-Public Use
  Company Number: US-SUN PHARMACEUTICAL INDUSTRIES LTD-2021R1-313023

PATIENT
  Sex: Male

DRUGS (3)
  1. ABIRATERONE. [Suspect]
     Active Substance: ABIRATERONE ACETATE
     Indication: Chemotherapy
     Dosage: 1000 MILLIGRAM, QD
     Route: 065
  2. PREDNISONE [Suspect]
     Active Substance: PREDNISONE
     Indication: Chemotherapy
     Dosage: 5 MILLIGRAM, BID
     Route: 065
  3. ENZALUTAMIDE [Suspect]
     Active Substance: ENZALUTAMIDE
     Indication: Chemotherapy
     Dosage: 160 MILLIGRAM, QD
     Route: 065

REACTIONS (2)
  - Pneumonia [Unknown]
  - Hyperglycaemia [Unknown]
